FAERS Safety Report 4707720-X (Version None)
Quarter: 2005Q2

REPORT INFORMATION
  Report Type: 
  Country: None (occurrence: None)
  Receive Date: 20050629
  Receipt Date: 20050516
  Transmission Date: 20051028
  Serious: No
  Sender: FDA-Public Use
  Company Number: 05P-163-0300574-00

PATIENT
  Age: 65 Year
  Sex: Female
  Weight: 91 kg

DRUGS (8)
  1. HUMIRA [Suspect]
     Indication: RHEUMATOID ARTHRITIS
     Dosage: 40 MG, 1 IN 2 WK, SUBCUTANEOUS
     Route: 058
     Dates: start: 20040601, end: 20050511
  2. PREDNISONE TAB [Concomitant]
  3. ESOMEPRAZOLE [Concomitant]
  4. ATENOLOL [Concomitant]
  5. AMLODIPINE  BESILATE [Concomitant]
  6. CRESTOR [Concomitant]
  7. DYAZIDE [Concomitant]
  8. LORATADINE [Concomitant]

REACTIONS (2)
  - HYPOAESTHESIA [None]
  - SWELLING FACE [None]
